FAERS Safety Report 10081123 (Version 1)
Quarter: 2014Q2

REPORT INFORMATION
  Report Type: Spontaneous
  Country: US (occurrence: None)
  Receive Date: 20140414
  Receipt Date: 20140414
  Transmission Date: 20141212
  Serious: Yes (Other)
  Sender: FDA-Public Use
  Company Number: UTC-046912

PATIENT
  Age: 72 Year
  Sex: Female
  Weight: 47.62 kg

DRUGS (1)
  1. REMODULIN (5 MILLIGRAM/MILLILTERS, INJECTION FOR INFUSION) (TREPROSTINI SODIUM) [Suspect]
     Indication: COR PULMONALE CHRONIC
     Dosage: 117UG/KG (0.08125 UG/KG, 1 IN 1 MIN) INTRAVENOUS DRIP
     Route: 041
     Dates: start: 20120301

REACTIONS (1)
  - Death [None]
